FAERS Safety Report 5110106-X (Version None)
Quarter: 2006Q3

REPORT INFORMATION
  Report Type: 
  Country: None (occurrence: None)
  Receive Date: 20060921
  Receipt Date: 20060908
  Transmission Date: 20061208
  Serious: Yes (Hospitalization, Other)
  Sender: FDA-Public Use
  Company Number: US-AVENTIS-200619372GDDC

PATIENT
  Age: 50 Year
  Sex: Female
  Weight: 93.26 kg

DRUGS (11)
  1. CODE UNBROKEN [Suspect]
     Route: 048
     Dates: start: 20060807, end: 20060813
  2. NAPROSYN [Concomitant]
     Indication: INTERVERTEBRAL DISC DISORDER
     Route: 048
     Dates: start: 20060401
  3. VISTARIL [Concomitant]
     Indication: ANXIETY
     Route: 048
     Dates: start: 20060301
  4. XANAX [Concomitant]
     Indication: ANXIETY
     Route: 048
     Dates: start: 20040101
  5. EFFEXOR [Concomitant]
     Indication: ANXIETY
     Route: 048
     Dates: start: 20040101
  6. ADVAIR DISKUS 100/50 [Concomitant]
     Indication: ASTHMA
     Dosage: DOSE: 250/50
     Route: 055
     Dates: start: 20030112
  7. ALBUTEROL [Concomitant]
     Indication: ASTHMA
     Route: 055
     Dates: start: 20030112
  8. ALBUTEROL [Concomitant]
     Route: 055
     Dates: start: 20050101
  9. ALBUTEROL [Concomitant]
     Indication: CHRONIC OBSTRUCTIVE PULMONARY DISEASE
     Route: 055
     Dates: start: 20030112
  10. ALBUTEROL [Concomitant]
     Route: 055
     Dates: start: 20050101
  11. LORTAB [Concomitant]
     Indication: INTERVERTEBRAL DISC DISORDER
     Route: 048
     Dates: start: 20050930

REACTIONS (3)
  - CHEST DISCOMFORT [None]
  - DYSPNOEA [None]
  - STATUS ASTHMATICUS [None]
